FAERS Safety Report 7469028-1 (Version None)
Quarter: 2011Q2

REPORT INFORMATION
  Report Type: 
  Country: None (occurrence: None)
  Receive Date: 20110510
  Receipt Date: 20110428
  Transmission Date: 20111010
  Serious: Yes (Death)
  Sender: FDA-Public Use
  Company Number: FR-CELGENEUS-056-C5013-11022969

PATIENT
  Sex: Male
  Weight: 82 kg

DRUGS (13)
  1. ZOLADEX [Concomitant]
     Route: 065
  2. CALCIT VIT D [Concomitant]
     Indication: CALCIUM DEFICIENCY
     Dosage: 500 MILLIGRAM
     Route: 048
     Dates: start: 20110114, end: 20110220
  3. ZOMETA [Concomitant]
     Dosage: .5714 MILLIGRAM
     Route: 051
     Dates: start: 20110114, end: 20110220
  4. FLUINDIONE [Concomitant]
     Indication: THROMBOSIS PROPHYLAXIS
     Dosage: 20 MILLIGRAM
     Route: 048
     Dates: start: 20110211, end: 20110220
  5. HYTACAND [Concomitant]
     Indication: HYPERTENSION
     Dosage: 18.5 MILLIGRAM
     Route: 048
     Dates: end: 20110220
  6. PREDNISONE TAB [Suspect]
     Indication: PROSTATE CANCER
     Dosage: 10 MILLIGRAM
     Route: 065
     Dates: start: 20110211, end: 20110218
  7. DEXAMETHASONE [Concomitant]
     Indication: PROPHYLAXIS
     Dosage: 16 MILLIGRAM
     Route: 048
     Dates: start: 20110210, end: 20110212
  8. RETINOL [Concomitant]
     Indication: PROPHYLAXIS
     Dosage: 1 APPLICATION
     Route: 062
     Dates: start: 20110211, end: 20110220
  9. DOCETAXEL [Suspect]
     Indication: PROSTATE CANCER
     Dosage: 140 MILLIGRAM
     Route: 065
     Dates: start: 20110211, end: 20110211
  10. GOSERELIN [Concomitant]
     Dosage: .12 MILLIGRAM
     Route: 058
     Dates: start: 20090410, end: 20110220
  11. ATACAND [Concomitant]
     Indication: HYPERTENSION
     Route: 065
  12. KYTRIL [Concomitant]
     Dosage: 2 MILLIGRAM
     Route: 048
     Dates: start: 20110211, end: 20110211
  13. LENALIDOMIDE [Suspect]
     Indication: PROSTATE CANCER
     Dosage: 25 MILLIGRAM
     Route: 048
     Dates: start: 20110211, end: 20110218

REACTIONS (3)
  - INTESTINAL INFARCTION [None]
  - MULTI-ORGAN FAILURE [None]
  - NEUTROPENIA [None]
